FAERS Safety Report 17753719 (Version 1)
Quarter: 2020Q2

REPORT INFORMATION
  Report Type: Spontaneous
  Country: US (occurrence: US)
  Receive Date: 20200507
  Receipt Date: 20200507
  Transmission Date: 20200714
  Serious: No
  Sender: FDA-Public Use
  Company Number: US-AMGEN-USASP2020072241

PATIENT
  Age: 84 Year
  Sex: Female

DRUGS (1)
  1. PROLIA [Suspect]
     Active Substance: DENOSUMAB
     Indication: OSTEOPOROSIS POSTMENOPAUSAL
     Dosage: UNK, Q6MO
     Route: 065

REACTIONS (5)
  - Acne [Unknown]
  - Toothache [Unknown]
  - Herpes zoster [Recovered/Resolved]
  - Depressed mood [Unknown]
  - Rash [Unknown]

NARRATIVE: CASE EVENT DATE: 201911
